FAERS Safety Report 8510431-6 (Version None)
Quarter: 2012Q3

REPORT INFORMATION
  Report Type: 
  Country: None (occurrence: None)
  Receive Date: 20120714
  Receipt Date: 20120710
  Transmission Date: 20120928
  Serious: Yes (Death, Hospitalization, Other)
  Sender: FDA-Public Use
  Company Number: PHHY2012US059064

PATIENT
  Age: 63 Year
  Sex: Male

DRUGS (3)
  1. OXALIPLATIN [Suspect]
     Indication: OESOPHAGEAL CARCINOMA
     Dosage: 85 MG/M2, UNK
     Dates: end: 20070201
  2. RADIATION THERAPY [Concomitant]
     Indication: OESOPHAGEAL CARCINOMA
     Dosage: UNK
     Dates: end: 20070301
  3. CAPECITABINE [Concomitant]
     Indication: OESOPHAGEAL CARCINOMA
     Dosage: 1250 MG/M2, UNK
     Route: 048
     Dates: end: 20070301

REACTIONS (13)
  - ACUTE MYELOID LEUKAEMIA [None]
  - RENAL FAILURE ACUTE [None]
  - LEUKOCYTOSIS [None]
  - HAEMODYNAMIC INSTABILITY [None]
  - DEATH [None]
  - SEPSIS [None]
  - FATIGUE [None]
  - PYREXIA [None]
  - ENTEROCOCCUS TEST POSITIVE [None]
  - BONE PAIN [None]
  - ASTHENIA [None]
  - THROMBOCYTOPENIA [None]
  - MENTAL STATUS CHANGES [None]
